FAERS Safety Report 13894507 (Version 3)
Quarter: 2017Q4

REPORT INFORMATION
  Report Type: Report from Study
  Country: None (occurrence: CA)
  Receive Date: 20170823
  Receipt Date: 20171012
  Transmission Date: 20180320
  Serious: Yes (Hospitalization, Other)
  Sender: FDA-Public Use
  Company Number: CA-ABBVIE-17K-028-2076186-00

PATIENT
  Age: 57 Year
  Sex: Male
  Weight: 116.22 kg

DRUGS (2)
  1. HUMIRA [Suspect]
     Active Substance: ADALIMUMAB
     Route: 058
     Dates: start: 20170901
  2. HUMIRA [Suspect]
     Active Substance: ADALIMUMAB
     Indication: COLITIS ULCERATIVE
     Route: 058
     Dates: start: 20150902, end: 201704

REACTIONS (8)
  - Stoma site extravasation [Recovered/Resolved]
  - Stoma site abscess [Recovered/Resolved]
  - Post procedural complication [Unknown]
  - Frequent bowel movements [Not Recovered/Not Resolved]
  - Full blood count decreased [Unknown]
  - Abscess rupture [Recovered/Resolved]
  - Post procedural fistula [Unknown]
  - Gastrointestinal inflammation [Not Recovered/Not Resolved]

NARRATIVE: CASE EVENT DATE: 2017
